FAERS Safety Report 22030256 (Version 1)
Quarter: 2023Q1

REPORT INFORMATION
  Report Type: Spontaneous
  Country: US (occurrence: US)
  Receive Date: 20230223
  Receipt Date: 20230223
  Transmission Date: 20230418
  Serious: No
  Sender: FDA-Public Use
  Company Number: US-PRIMUS-2023-US-002257

PATIENT
  Age: 78 Year
  Sex: Male
  Weight: 72.58 kg

DRUGS (5)
  1. SERNIVO [Suspect]
     Active Substance: BETAMETHASONE DIPROPIONATE
     Indication: Psoriasis
     Dosage: APPLY TOPICALLY A THIN COAT TO SCALP TWICE A DAY
     Route: 061
     Dates: start: 20230102, end: 20230125
  2. UNSPECIFIED INGREDIENT [Suspect]
     Active Substance: UNSPECIFIED INGREDIENT
     Dosage: 10 - 12 INJECTIONS TO SCALP
     Dates: start: 20230123, end: 202301
  3. CRESTOR [Concomitant]
     Active Substance: ROSUVASTATIN CALCIUM
  4. PLAVIX [Concomitant]
     Active Substance: CLOPIDOGREL BISULFATE
  5. ASPIRIN [Concomitant]
     Active Substance: ASPIRIN

REACTIONS (2)
  - Purulent discharge [Not Recovered/Not Resolved]
  - Herpes zoster [Not Recovered/Not Resolved]

NARRATIVE: CASE EVENT DATE: 20230101
